FAERS Safety Report 10150329 (Version 1)
Quarter: 2014Q2

REPORT INFORMATION
  Report Type: Spontaneous
  Country: DE (occurrence: DE)
  Receive Date: 20140502
  Receipt Date: 20140502
  Transmission Date: 20141212
  Serious: Yes (Other)
  Sender: FDA-Public Use
  Company Number: DE-BRISTOL-MYERS SQUIBB COMPANY-20674081

PATIENT
  Age: 10 Year
  Sex: Female
  Weight: 19 kg

DRUGS (9)
  1. SUSTIVA [Suspect]
     Indication: HIV INFECTION
     Route: 048
  2. DIDANOSINE [Concomitant]
  3. LAMIVUDINE [Concomitant]
  4. ZIDOVUDINE [Concomitant]
  5. CO-TRIMOXAZOLE [Concomitant]
  6. RIFAMPICIN [Concomitant]
  7. ETHAMBUTOL [Concomitant]
  8. LEVOFLOXACIN [Concomitant]
  9. KLACID [Concomitant]

REACTIONS (2)
  - Mycobacterial infection [Not Recovered/Not Resolved]
  - Encephalopathy [Not Recovered/Not Resolved]
